FAERS Safety Report 12970285 (Version 1)
Quarter: 2016Q4

REPORT INFORMATION
  Report Type: Report from Study
  Country: US (occurrence: US)
  Receive Date: 20161123
  Receipt Date: 20161123
  Transmission Date: 20170207
  Serious: Yes (Hospitalization)
  Sender: FDA-Public Use
  Company Number: US-BAYER-2015-283235

PATIENT
  Age: 79 Year
  Sex: Male

DRUGS (6)
  1. STIVARGA [Suspect]
     Active Substance: REGORAFENIB
     Indication: COLON CANCER
     Dosage: 160 MG DAILY DOSE, 4 TABS QDX21 DAYS ON THEN 7 DAYS OFF
     Route: 048
     Dates: start: 20150529, end: 2015
  2. STIVARGA [Suspect]
     Active Substance: REGORAFENIB
     Indication: COLON CANCER
     Dosage: 80 MG QD FOR 2 WEEKS ON 2 WEEKS OFF, THEN STOP FOR TWO WEEKS, EACH MONTH
     Route: 048
     Dates: start: 2015
  3. STIVARGA [Suspect]
     Active Substance: REGORAFENIB
     Indication: COLORECTAL CANCER
     Dosage: 80 MG DAILY DOSE, 2 TABS QDX21 DAYS THEN 7 DAYS OFF
     Route: 048
     Dates: start: 20150820
  4. STIVARGA [Suspect]
     Active Substance: REGORAFENIB
     Indication: COLON CANCER
     Dosage: 80 MG QD FOR 2 WEEKS ON 2 WEEKS OFF, THEN STOP FOR TWO WEEKS, EACH MONTH
     Route: 048
     Dates: start: 2015
  5. STIVARGA [Suspect]
     Active Substance: REGORAFENIB
     Indication: COLON CANCER
     Dosage: 80 MG, QD CYCLE
     Route: 048
     Dates: end: 2016
  6. STIVARGA [Suspect]
     Active Substance: REGORAFENIB
     Indication: COLON CANCER
     Dosage: 80 MG QD FOR 2 WEEKS ON, 2 WEEKS OFF
     Route: 048

REACTIONS (14)
  - Gait disturbance [None]
  - Off label use [None]
  - Diarrhoea [None]
  - Weight decreased [None]
  - Diarrhoea [None]
  - Vascular graft [None]
  - Diarrhoea [None]
  - Gastrointestinal pain [None]
  - Muscle spasms [None]
  - Muscle spasms [None]
  - Muscle spasms [None]
  - Dry mouth [None]
  - Diarrhoea [None]
  - Muscle spasms [None]

NARRATIVE: CASE EVENT DATE: 201305
